FAERS Safety Report 25196282 (Version 1)
Quarter: 2025Q2

REPORT INFORMATION
  Report Type: Spontaneous
  Country: GB (occurrence: GB)
  Receive Date: 20250415
  Receipt Date: 20250415
  Transmission Date: 20250716
  Serious: Yes (Other)
  Sender: MERCK SHARP AND DOHME
  Company Number: GB-009507513-2274897

PATIENT
  Age: 55 Year
  Sex: Male

DRUGS (1)
  1. DELSTRIGO [Suspect]
     Active Substance: DORAVIRINE\LAMIVUDINE\TENOFOVIR DISOPROXIL FUMARATE
     Indication: HIV infection
     Route: 048
     Dates: start: 202303, end: 202503

REACTIONS (3)
  - Nephrolithiasis [Unknown]
  - HIV viraemia [Unknown]
  - Drug resistance [Unknown]

NARRATIVE: CASE EVENT DATE: 20230101
